FAERS Safety Report 8573567-X (Version None)
Quarter: 2012Q3

REPORT INFORMATION
  Report Type: 
  Country: None (occurrence: None)
  Receive Date: 20120806
  Receipt Date: 20101124
  Transmission Date: 20120928
  Serious: Yes (Death, Hospitalization)
  Sender: FDA-Public Use
  Company Number: DE-CELGENEUS-062-50794-12052657

PATIENT
  Age: 76 Year
  Sex: Male
  Weight: 80 kg

DRUGS (2)
  1. VIDAZA [Suspect]
     Indication: MYELODYSPLASTIC SYNDROME
     Route: 058
     Dates: start: 20100816, end: 20100824
  2. RED BLOOD CELLS [Concomitant]
     Indication: TRANSFUSION
     Route: 065
     Dates: start: 20100818

REACTIONS (6)
  - CARDIAC FAILURE [None]
  - INFECTION [None]
  - INJECTION SITE REACTION [None]
  - GENERAL PHYSICAL HEALTH DETERIORATION [None]
  - MUCOSAL INFLAMMATION [None]
  - ONCOLOGIC COMPLICATION [None]
